FAERS Safety Report 23721501 (Version 1)
Quarter: 2024Q2

REPORT INFORMATION
  Report Type: Report from Study
  Country: CA (occurrence: CA)
  Receive Date: 20240409
  Receipt Date: 20240409
  Transmission Date: 20240716
  Serious: Yes (Hospitalization)
  Sender: FDA-Public Use
  Company Number: CA-BoehringerIngelheim-2023-BI-229257

PATIENT
  Age: 91 Year
  Sex: Male

DRUGS (2)
  1. OFEV [Suspect]
     Active Substance: NINTEDANIB
     Indication: Idiopathic pulmonary fibrosis
     Route: 048
     Dates: start: 20230131
  2. OFEV [Suspect]
     Active Substance: NINTEDANIB
     Route: 048
     Dates: start: 20230201

REACTIONS (5)
  - Cholecystitis infective [Not Recovered/Not Resolved]
  - Failure to thrive [Not Recovered/Not Resolved]
  - Pulmonary function test abnormal [Not Recovered/Not Resolved]
  - Diarrhoea [Not Recovered/Not Resolved]
  - Movement disorder [Unknown]
